FAERS Safety Report 13036627 (Version 1)
Quarter: 2016Q4

REPORT INFORMATION
  Report Type: Spontaneous
  Country: US (occurrence: US)
  Receive Date: 20161216
  Receipt Date: 20161216
  Transmission Date: 20170207
  Serious: No
  Sender: FDA-Public Use
  Company Number: US-PERRIGO-16US001070

PATIENT
  Age: 35 Year
  Sex: Female

DRUGS (2)
  1. TRAMADOL. [Concomitant]
     Active Substance: TRAMADOL
     Indication: PRODUCT USED FOR UNKNOWN INDICATION
     Dosage: UNK
     Route: 048
  2. TIOCONAZOLE. [Suspect]
     Active Substance: TIOCONAZOLE
     Indication: VULVOVAGINAL MYCOTIC INFECTION
     Dosage: 300 MG, SINGLE
     Route: 067
     Dates: start: 20160101, end: 20160101

REACTIONS (5)
  - Vaginal inflammation [None]
  - Drug ineffective [None]
  - Condition aggravated [None]
  - Vulvovaginal pain [None]
  - Vulvovaginal pruritus [None]

NARRATIVE: CASE EVENT DATE: 20160101
